FAERS Safety Report 5267947-8 (Version None)
Quarter: 2007Q1

REPORT INFORMATION
  Report Type: 
  Country: None (occurrence: None)
  Receive Date: 20061213
  Receipt Date: 20020530
  Transmission Date: 20070707
  Serious: Yes (Hospitalization)
  Sender: FDA-Public Use
  Company Number: 2001UW11478

PATIENT
  Age: 79 Year
  Sex: Female

DRUGS (10)
  1. ARIMIDEX [Suspect]
     Indication: BREAST CANCER
     Dosage: 1 MG QD PO
     Route: 048
     Dates: start: 19980709, end: 20010909
  2. NOLVADEX [Suspect]
     Indication: BREAST CANCER
     Dosage: 20 MG QD PO
     Route: 048
     Dates: start: 19980709, end: 20010909
  3. NORVASC [Concomitant]
  4. BUMETANIDE [Concomitant]
  5. CATAPRES [Concomitant]
  6. GLUCOSAMINE [Concomitant]
  7. CENTRUM SILVER [Concomitant]
  8. CALCIUM [Concomitant]
  9. TIMOPTIC [Concomitant]
  10. PROPINE [Concomitant]

REACTIONS (1)
  - PULMONARY EMBOLISM [None]
